FAERS Safety Report 7000731-3 (Version None)
Quarter: 2010Q3

REPORT INFORMATION
  Report Type: 
  Country: None (occurrence: None)
  Receive Date: 20100920
  Receipt Date: 20100108
  Transmission Date: 20110219
  Serious: No
  Sender: FDA-Public Use
  Company Number: US-ASTRAZENECA-2010SE00947

PATIENT
  Age: 45 Year
  Sex: Female

DRUGS (1)
  1. SEROQUEL XR [Suspect]
     Route: 048
     Dates: start: 20091101

REACTIONS (4)
  - DRUG DOSE OMISSION [None]
  - MENSTRUAL DISORDER [None]
  - OLIGOMENORRHOEA [None]
  - POOR QUALITY SLEEP [None]
